FAERS Safety Report 25478407 (Version 1)
Quarter: 2025Q2

REPORT INFORMATION
  Report Type: Spontaneous
  Country: US (occurrence: None)
  Receive Date: 20250625
  Receipt Date: 20250625
  Transmission Date: 20250717
  Serious: No
  Sender: FDA-CTU
  Company Number: None

PATIENT
  Age: 74 Year
  Sex: Female
  Weight: 57.61 kg

DRUGS (2)
  1. PAXLOVID [Suspect]
     Active Substance: NIRMATRELVIR\RITONAVIR
     Indication: COVID-19
     Dosage: OTHER QUANTITY : TAKE 3 TABLES (2X NINNATRCLVIR + IX RITONAVIRFOR 5;?FREQUENCY : TWICE A DAY;?
     Route: 048
     Dates: start: 20240710, end: 20240714
  2. CALCIUM CITRATE WITH MAGNESIUM [Concomitant]

REACTIONS (4)
  - Tinnitus [None]
  - Anxiety [None]
  - Hallucination, auditory [None]
  - Therapy cessation [None]

NARRATIVE: CASE EVENT DATE: 20240713
